FAERS Safety Report 8983736 (Version 2)
Quarter: 2013Q1

REPORT INFORMATION
  Report Type: Report from Study
  Country: SE (occurrence: SE)
  Receive Date: 20121224
  Receipt Date: 20130107
  Transmission Date: 20140127
  Serious: Yes (Hospitalization)
  Sender: FDA-Public Use
  Company Number: SE-ROCHE-1136052

PATIENT
  Age: 80 Year
  Sex: Male
  Weight: 82.3 kg

DRUGS (10)
  1. VEMURAFENIB [Suspect]
     Indication: MALIGNANT MELANOMA
     Dosage: DATE OF LAST DOSE PRIOR TO SAE: 19/NOV/2012
     Route: 048
     Dates: start: 20110928, end: 20111120
  2. VEMURAFENIB [Suspect]
     Route: 048
     Dates: start: 20121206
  3. BENDROFLUAZIDE [Concomitant]
     Route: 065
     Dates: start: 1981
  4. FELODIPIN [Concomitant]
     Route: 065
     Dates: start: 1981
  5. ATENOLOL [Concomitant]
     Route: 065
     Dates: start: 1981
  6. ACETYLSALICYLSYRA [Concomitant]
     Route: 065
     Dates: start: 1988
  7. METFORMIN [Concomitant]
     Route: 065
     Dates: start: 20120412
  8. DICLOFENAC [Concomitant]
     Route: 065
     Dates: start: 20120703
  9. ACETYLCYSTEINE [Concomitant]
     Route: 065
     Dates: start: 20121023
  10. RAMIPRIL [Concomitant]
     Route: 065
     Dates: start: 20120915

REACTIONS (3)
  - Cardiac failure [Recovered/Resolved]
  - Supraventricular tachycardia [Recovered/Resolved]
  - Cholecystitis [Recovered/Resolved]
